FAERS Safety Report 6904373-7 (Version None)
Quarter: 2010Q3

REPORT INFORMATION
  Report Type: 
  Country: None (occurrence: None)
  Receive Date: 20100804
  Receipt Date: 20090504
  Transmission Date: 20110219
  Serious: No
  Sender: FDA-Public Use
  Company Number: US-PFIZER INC-2009208684

PATIENT
  Sex: Male

DRUGS (7)
  1. LYRICA [Suspect]
     Indication: POST HERPETIC NEURALGIA
     Dosage: 75 MG, 2X/DAY
     Dates: start: 20080901
  2. OMEPRAZOLE [Concomitant]
     Dosage: UNK
  3. PRAVASTATIN [Concomitant]
     Dosage: UNK
  4. HYZAAR [Concomitant]
     Dosage: 100/25 MG
  5. LIDODERM [Concomitant]
     Dosage: UNK
  6. VITAMIN B6 [Concomitant]
     Dosage: UNK
  7. TYLENOL [Concomitant]
     Dosage: UNK

REACTIONS (1)
  - PAIN [None]
